FAERS Safety Report 5198709-8 (Version None)
Quarter: 2007Q1

REPORT INFORMATION
  Report Type: 
  Country: None (occurrence: None)
  Receive Date: 20070104
  Receipt Date: 20061222
  Transmission Date: 20070707
  Serious: Yes (Other)
  Sender: FDA-Public Use
  Company Number: DE-ELI_LILLY_AND_COMPANY-DE200611004939

PATIENT
  Age: 40 Year
  Sex: Female
  Weight: 80 kg

DRUGS (5)
  1. CYMBALTA [Suspect]
     Indication: DEPRESSION
     Dosage: UNK, UNK
     Route: 048
     Dates: start: 20060809
  2. CYMBALTA [Suspect]
     Dosage: 120 MG, DAILY (1/D)
  3. IBUHEXAL [Concomitant]
     Indication: BACK PAIN
     Dosage: 600 MG, DAILY (1/D)
     Route: 048
  4. DOXEPIN HCL [Concomitant]
     Indication: DEPRESSION
     Dosage: 75 MG, DAILY (1/D)
     Route: 048
  5. NEXIUM [Concomitant]
     Indication: ABDOMINAL DISCOMFORT
     Dosage: 20 MG, DAILY (1/D)
     Route: 048

REACTIONS (2)
  - COLITIS ULCERATIVE [None]
  - CONSTIPATION [None]
